FAERS Safety Report 25674542 (Version 1)
Quarter: 2025Q3

REPORT INFORMATION
  Report Type: Spontaneous
  Country: EU (occurrence: EU)
  Receive Date: 20250813
  Receipt Date: 20250813
  Transmission Date: 20251021
  Serious: Yes (Other)
  Sender: BIOVITRUM
  Company Number: EU-BIOVITRUM-2025-FR-011021

PATIENT

DRUGS (1)
  1. KINERET [Suspect]
     Active Substance: ANAKINRA
     Indication: Product used for unknown indication

REACTIONS (14)
  - Injection site rash [Recovered/Resolved]
  - Anxiety [Recovered/Resolved]
  - Myopathy [Unknown]
  - Osteopenia [Unknown]
  - Blood creatinine increased [Recovered/Resolved]
  - Injection site reaction [Recovered/Resolved]
  - Amaurosis fugax [Unknown]
  - Headache [Recovered/Resolved]
  - Dizziness [Recovered/Resolved]
  - Haematoma [Recovered/Resolved]
  - Fall [Recovered/Resolved]
  - Spinal osteoarthritis [Recovered/Resolved]
  - Stasis dermatitis [Unknown]
  - Condition aggravated [Recovered/Resolved]

NARRATIVE: CASE EVENT DATE: 20180101
